FAERS Safety Report 9031111 (Version 2)
Quarter: 2014Q1

REPORT INFORMATION
  Report Type: Spontaneous
  Country: US (occurrence: US)
  Receive Date: 20130123
  Receipt Date: 20140224
  Transmission Date: 20141002
  Serious: Yes (Hospitalization)
  Sender: FDA-Public Use
  Company Number: US-BAYER-2013-008888

PATIENT
  Age: 40 Year
  Sex: Female
  Weight: 92.52 kg

DRUGS (6)
  1. YASMIN [Suspect]
     Indication: CONTRACEPTION
     Dosage: UNK
     Dates: start: 20030410, end: 20040607
  2. YASMIN [Suspect]
     Indication: MENSTRUAL CYCLE MANAGEMENT
     Dosage: UNK
     Dates: start: 20050425, end: 20051211
  3. AZITHROMYCIN [Concomitant]
     Indication: BRONCHITIS
     Dosage: 250 MG, UNK
  4. ALBUTEROL [Concomitant]
  5. PREDNISONE [Concomitant]
     Dosage: 20 MG, UNK
  6. MULTIVITAMINS [Concomitant]
     Dosage: DAILY

REACTIONS (4)
  - Cerebrovascular accident [None]
  - Ischaemic stroke [None]
  - Cerebral infarction [None]
  - Vertebral artery dissection [None]
